FAERS Safety Report 5498771-9 (Version None)
Quarter: 2007Q4

REPORT INFORMATION
  Report Type: 
  Country: None (occurrence: None)
  Receive Date: 20071026
  Receipt Date: 20070716
  Transmission Date: 20080405
  Serious: No
  Sender: FDA-Public Use
  Company Number: A0664332A

PATIENT
  Sex: Female

DRUGS (8)
  1. ADVAIR DISKUS 100/50 [Suspect]
     Indication: EMPHYSEMA
     Route: 055
     Dates: start: 20070616
  2. COMBIVENT [Concomitant]
  3. PLAVIX [Concomitant]
  4. CHILDREN ASPIRIN [Concomitant]
  5. TOPROL-XL [Concomitant]
  6. DIOVAN [Concomitant]
  7. LOVASTATIN [Concomitant]
  8. CALCIUM CITRATE [Concomitant]

REACTIONS (3)
  - MUSCLE SPASMS [None]
  - MUSCULOSKELETAL DISORDER [None]
  - SCIATICA [None]
